FAERS Safety Report 14081588 (Version 1)
Quarter: 2017Q4

REPORT INFORMATION
  Report Type: Spontaneous
  Country: US (occurrence: US)
  Receive Date: 20171013
  Receipt Date: 20171013
  Transmission Date: 20180321
  Serious: Yes (Other)
  Sender: FDA-Public Use
  Company Number: US-NAPPMUNDI-USA-2017-0141156

PATIENT
  Age: 59 Year
  Sex: Male

DRUGS (3)
  1. BUTRANS [Suspect]
     Active Substance: BUPRENORPHINE
     Indication: PAIN
     Dosage: 10 MCG/HR, WEEKLY
     Route: 062
     Dates: start: 20170925
  2. BUTRANS [Suspect]
     Active Substance: BUPRENORPHINE
     Dosage: 20 MCG/HR, WEEKLY
     Route: 062
     Dates: start: 20170711, end: 20170925
  3. BUTRANS [Suspect]
     Active Substance: BUPRENORPHINE
     Dosage: UNK MCG/HR, WEEKLY
     Route: 062
     Dates: start: 2015, end: 20170711

REACTIONS (5)
  - Product packaging quantity issue [Unknown]
  - Nephrolithiasis [Unknown]
  - Product use complaint [Unknown]
  - Shoulder operation [Unknown]
  - Knee operation [Unknown]

NARRATIVE: CASE EVENT DATE: 2015
